FAERS Safety Report 7265094-7 (Version None)
Quarter: 2011Q1

REPORT INFORMATION
  Report Type: 
  Country: None (occurrence: None)
  Receive Date: 20110131
  Receipt Date: 20110126
  Transmission Date: 20110831
  Serious: Yes (Life-Threatening, Hospitalization)
  Sender: FDA-Public Use
  Company Number: PT-B.I. PHARMACEUTICALS,INC./RIDGEFIELD-2011-DE-00686PO

PATIENT
  Sex: Female

DRUGS (8)
  1. CELEBREX [Suspect]
     Indication: SCIATICA
     Route: 048
     Dates: start: 20110101, end: 20110101
  2. BECLOTAIDE FORTE [Concomitant]
     Indication: BRONCHOSPASM
     Route: 048
     Dates: start: 20110121, end: 20110124
  3. LYRICA [Suspect]
     Indication: SCIATICA
     Route: 048
     Dates: start: 20110101, end: 20110101
  4. OMEPRAZOLE [Concomitant]
     Indication: PROPHYLAXIS
     Route: 048
     Dates: start: 20110101
  5. UNSPECIFIED CONTRACEPTIVE DRUG [Concomitant]
  6. RELMUS [Suspect]
     Indication: SCIATICA
     Route: 048
     Dates: start: 20110101, end: 20110101
  7. UNSPECIFIED ANTI-INFLAMMATORY DRUGS [Concomitant]
     Indication: MIGRAINE
  8. ATROVENT [Suspect]
     Indication: BRONCHOSPASM
     Route: 065
     Dates: start: 20110121, end: 20110124

REACTIONS (14)
  - PRURITUS [None]
  - VOMITING [None]
  - DYSPNOEA [None]
  - RASH ERYTHEMATOUS [None]
  - GENERALISED OEDEMA [None]
  - ANAPHYLACTIC REACTION [None]
  - TACHYPNOEA [None]
  - DIZZINESS [None]
  - BLOOD GLUCOSE INCREASED [None]
  - PYREXIA [None]
  - BRONCHOSPASM [None]
  - VIRAL INFECTION [None]
  - ABDOMINAL PAIN UPPER [None]
  - TACHYCARDIA [None]
